FAERS Safety Report 6832252-2 (Version None)
Quarter: 2010Q3

REPORT INFORMATION
  Report Type: 
  Country: None (occurrence: None)
  Receive Date: 20100712
  Receipt Date: 20100709
  Transmission Date: 20110219
  Serious: Yes (Other)
  Sender: FDA-Public Use
  Company Number: US-WYE-H15353510

PATIENT
  Age: 3 Year
  Sex: Male
  Weight: 14.07 kg

DRUGS (1)
  1. CHILDREN'S ADVIL [Suspect]
     Indication: PYREXIA
     Dosage: .75 TSP EVERY 1 DAY;  CUMULATIVE DOSE TO EVENT: 1 TSP
     Route: 048
     Dates: start: 20100525, end: 20100525

REACTIONS (3)
  - EYELID OEDEMA [None]
  - HYPERSENSITIVITY [None]
  - SWELLING FACE [None]
